FAERS Safety Report 6335245-7 (Version None)
Quarter: 2009Q3

REPORT INFORMATION
  Report Type: 
  Country: None (occurrence: None)
  Receive Date: 20090831
  Receipt Date: 20090819
  Transmission Date: 20100115
  Serious: Yes (Hospitalization, Other)
  Sender: FDA-Public Use
  Company Number: US-PFIZER INC-2009258640

PATIENT
  Sex: Female
  Weight: 65.215 kg

DRUGS (5)
  1. GABAPENTIN [Suspect]
     Indication: BACK PAIN
     Dosage: 200 MG, 4X/DAY
     Route: 048
     Dates: start: 20060101
  2. GABAPENTIN [Suspect]
     Indication: NEURALGIA
  3. SYNTHROID [Concomitant]
     Indication: HYPOTHYROIDISM
     Dosage: 0.1 MG, 1X/DAY
     Route: 048
  4. ATIVAN [Concomitant]
     Indication: ANXIETY
     Dosage: THREE TO FOUR TIMES A DAY
     Route: 048
  5. VITAMIN D [Concomitant]
     Dosage: 800 MG, 1X/DAY
     Route: 048

REACTIONS (2)
  - CARDIAC ARREST [None]
  - PALPITATIONS [None]
